FAERS Safety Report 4465025-9 (Version None)
Quarter: 2004Q3

REPORT INFORMATION
  Report Type: 
  Country: None (occurrence: None)
  Receive Date: 20040928
  Receipt Date: 20040928
  Transmission Date: 20050211
  Serious: Yes (Hospitalization, Disabling)
  Sender: FDA-Public Use
  Company Number: None

PATIENT
  Sex: Female
  Weight: 45.3597 kg

DRUGS (4)
  1. LEVAQUIN [Suspect]
     Indication: BRONCHITIS ACUTE
     Dosage: 500 MG DAILY ORAL
     Route: 048
     Dates: start: 20040923, end: 20040923
  2. PREDNISONE [Suspect]
     Indication: BRONCHITIS ACUTE
     Dosage: 50 MG  DAILY  ORAL
     Route: 048
     Dates: start: 20040923, end: 20040923
  3. CUMADIN [Concomitant]
  4. LOVENOX [Concomitant]

REACTIONS (3)
  - DIFFICULTY IN WALKING [None]
  - HAEMATOMA [None]
  - PAIN IN EXTREMITY [None]
